FAERS Safety Report 6177681-8 (Version None)
Quarter: 2009Q2

REPORT INFORMATION
  Report Type: 
  Country: None (occurrence: None)
  Receive Date: 20090504
  Receipt Date: 20090424
  Transmission Date: 20091009
  Serious: Yes (Hospitalization)
  Sender: FDA-Public Use
  Company Number: PHHY2009VE15818

PATIENT
  Sex: Female

DRUGS (4)
  1. DIOVAN [Suspect]
     Indication: HYPERTENSION
     Dosage: 160 MG, BID
     Route: 048
     Dates: start: 20090406
  2. PERINDOPRIL ERBUMINE [Concomitant]
  3. CATAPRESAN [Concomitant]
  4. OMEPRAZOLE [Concomitant]

REACTIONS (1)
  - HYPERTENSIVE CRISIS [None]
